FAERS Safety Report 10049926 (Version 2)
Quarter: 2014Q2

REPORT INFORMATION
  Report Type: Spontaneous
  Country: IT (occurrence: IT)
  Receive Date: 20140401
  Receipt Date: 20140408
  Transmission Date: 20141212
  Serious: Yes (Hospitalization)
  Sender: FDA-Public Use
  Company Number: IT-TEVA-472143ISR

PATIENT
  Age: 59 Year
  Sex: Female

DRUGS (2)
  1. CITALOPRAM [Suspect]
     Dosage: 15 ML TOTAL
     Route: 048
     Dates: start: 20140309, end: 20140309
  2. GLICLAZIDE [Concomitant]
     Route: 048

REACTIONS (2)
  - Muscle contractions involuntary [Unknown]
  - Drug abuse [Unknown]
